FAERS Safety Report 8519661-0 (Version None)
Quarter: 2012Q3

REPORT INFORMATION
  Report Type: 
  Country: None (occurrence: None)
  Receive Date: 20120719
  Receipt Date: 20120709
  Transmission Date: 20120928
  Serious: No
  Sender: FDA-Public Use
  Company Number: US-009507513-1207USA002246

PATIENT

DRUGS (2)
  1. LEXAPRO [Concomitant]
  2. JANUMET [Suspect]
     Indication: DIABETES MELLITUS
     Dosage: 50/1000MG, BID
     Route: 048

REACTIONS (2)
  - RHINORRHOEA [None]
  - NASAL CONGESTION [None]
